FAERS Safety Report 13514277 (Version 1)
Quarter: 2017Q2

REPORT INFORMATION
  Report Type: Spontaneous
  Country: US (occurrence: US)
  Receive Date: 20170504
  Receipt Date: 20170504
  Transmission Date: 20170830
  Serious: No
  Sender: FDA-Public Use
  Company Number: US-ABBVIE-16P-163-1675752-00

PATIENT
  Sex: Male

DRUGS (1)
  1. CREON [Suspect]
     Active Substance: PANCRELIPASE AMYLASE\PANCRELIPASE LIPASE\PANCRELIPASE PROTEASE
     Indication: AMYLASE DECREASED
     Route: 048

REACTIONS (6)
  - Gastrooesophageal reflux disease [Unknown]
  - Pancreatic enzymes decreased [Unknown]
  - Steatorrhoea [Unknown]
  - Amylase decreased [Unknown]
  - Somnolence [Unknown]
  - Abdominal pain upper [Unknown]
